FAERS Safety Report 9788136 (Version 1)
Quarter: 2013Q4

REPORT INFORMATION
  Report Type: Spontaneous
  Country: US (occurrence: None)
  Receive Date: 20131227
  Receipt Date: 20131227
  Transmission Date: 20140711
  Serious: Yes (Hospitalization)
  Sender: FDA-Public Use
  Company Number: None

PATIENT
  Age: 91 Year
  Sex: Female
  Weight: 43.63 kg

DRUGS (9)
  1. AMIODARONE [Suspect]
     Indication: ATRIAL FIBRILLATION
     Route: 048
  2. AMIODARONE [Suspect]
     Indication: CARDIOVERSION
     Route: 048
  3. WARFARIN [Suspect]
     Indication: ATRIAL FIBRILLATION
     Dosage: RESENT
     Route: 048
  4. WARFARIN [Suspect]
     Indication: CARDIOVERSION
     Dosage: RESENT
     Route: 048
  5. ATORVASTATIN [Concomitant]
  6. APAP [Concomitant]
  7. CYANOCOBALAMIN [Concomitant]
  8. OCULAR LUBRICANT [Concomitant]
  9. CHOLECALCIFEROL [Concomitant]

REACTIONS (6)
  - Asthenia [None]
  - Bradycardia [None]
  - International normalised ratio increased [None]
  - Liver function test abnormal [None]
  - Drug interaction [None]
  - Toxicity to various agents [None]
